FAERS Safety Report 5649258-1 (Version None)
Quarter: 2008Q1

REPORT INFORMATION
  Report Type: 
  Country: None (occurrence: None)
  Receive Date: 20080304
  Receipt Date: 20071129
  Transmission Date: 20080703
  Serious: No
  Sender: FDA-Public Use
  Company Number: US-BAYER-200715940NA

PATIENT

DRUGS (1)
  1. ULTRAVIST 300 PHARMACY BULK PACKAGE [Suspect]
     Indication: UNEVALUABLE EVENT

REACTIONS (2)
  - NAUSEA [None]
  - VOMITING [None]
